FAERS Safety Report 8598456-6 (Version None)
Quarter: 2012Q3

REPORT INFORMATION
  Report Type: 
  Country: None (occurrence: None)
  Receive Date: 20120806
  Receipt Date: 20120806
  Transmission Date: 20120928
  Serious: Yes (Hospitalization)
  Sender: FDA-Public Use
  Company Number: None

PATIENT
  Age: 68 Year
  Sex: Male
  Weight: 79.2 kg

DRUGS (1)
  1. NAFCILLIN [Suspect]
     Indication: STAPHYLOCOCCAL BACTERAEMIA
     Dosage: 2 GM OTHER IV
     Route: 042
     Dates: start: 20120605, end: 20120613

REACTIONS (3)
  - JAUNDICE [None]
  - HAEMOGLOBIN DECREASED [None]
  - TUBULOINTERSTITIAL NEPHRITIS [None]
